FAERS Safety Report 8950778 (Version 1)
Quarter: 2012Q4

REPORT INFORMATION
  Report Type: Spontaneous
  Country: US (occurrence: None)
  Receive Date: 20121128
  Receipt Date: 20121128
  Transmission Date: 20130627
  Serious: Yes (Life-Threatening, Hospitalization)
  Sender: FDA-Public Use
  Company Number: 2012-0177

PATIENT
  Age: 68 Year
  Sex: Female
  Weight: 76 kg

DRUGS (22)
  1. CARFILZOMIB [Suspect]
     Indication: MULTIPLE MYELOMA
     Dosage: (36.6 mg, days 1,2)
     Route: 042
     Dates: start: 20020220, end: 20120220
  2. CARFILZOMIB [Suspect]
     Indication: MULTIPLE MYELOMA
     Dosage: (35.6 mg  Days 8, 9, 15, 16),
     Route: 042
     Dates: start: 20120227, end: 20120228
  3. CARFILZOMIB [Suspect]
     Indication: MULTIPLE MYELOMA
     Dosage: (48, days 8, 9, 15, 16)
     Route: 042
     Dates: start: 20120305, end: 20120306
  4. CARFILZOMIB [Suspect]
     Indication: MULTIPLE MYELOMA
     Dosage: (48.3, Days 1, 2,8,9, 15, 16 every 28 days)
     Route: 042
     Dates: start: 20120319, end: 20120403
  5. CARFILZOMIB [Suspect]
     Indication: MULTIPLE MYELOMA
     Dosage: (49.1 , Days 1, 2, 8, 9,15, 1y every 28 days),
     Route: 042
     Dates: start: 20120416, end: 20120821
  6. ESOMEPRAZOLE MAGNESIUM (ESOMEPRAZOLE MAGNESIUM)(ESOMEPRAZOLE MAGNESIUM) [Concomitant]
  7. NEURONTIN (GABAPENTIN)(GABAPENTIN) [Concomitant]
  8. ALLOPURINOL [Concomitant]
  9. CHILDREN^S ASPIRIN (ACETYLSALICYLIC ACID)(ACETYLSALICYLIC ACID) [Concomitant]
  10. BUPRENORPHINE(BUPRENORPHINE)(BUPRENORPHINE) [Concomitant]
  11. ACYCLOVIR (ACICLOVIR)(ACICLOVIR) [Concomitant]
  12. AMLODIPINE BESYLATE (AMLODIPINE BESILATE)(AMLODIPINE BESILATE) [Suspect]
  13. GLIPIZIDE (GLIPIZIDE)(GLIPIZIDE) [Concomitant]
  14. BUPRENORPHINE (BUPRENORPHINE)(BUDRENORPHINE) CYCLOBENZAPRINE HC1(CYCLOSENZAPRINE [Concomitant]
  15. CHLORIDE (POTASSIUM CHLORIDE)(POTASSIUM CHLORIDE) [Concomitant]
  16. CYCLOBENZAPRINE HCL (CYCLOSENZAPRINE HYDROCHLORIDE)(CYCLOBENZAPRINE HYDROCHLORIDE) [Concomitant]
  17. LIDOCAINE-PRILOCAINE (EMLA CREAM)(LIDOCAINE)(LIDOCAINE) [Concomitant]
  18. LORAZEPAM(LORAZEPAM) (LORAZEPAM) [Concomitant]
  19. LIDOCAINE PATCH (LIDOCAINE) ( LIDOCAINE) [Concomitant]
  20. KETAMINE/AMITRIPTYLINE/BACLOFEN COMPOUNDED GEL(KETAMINE) (KETAMINE) [Concomitant]
  21. METOPROLOL SUCCINATE(METOPROLOL SUCCINATE)(METOPROLOL STJCCINATE) [Concomitant]
  22. ZOLOFT(SERTRALINE HYDROCHLORIDE)(SERTRALINE HYDROCHLORIDE) [Concomitant]

REACTIONS (4)
  - Chest discomfort [None]
  - Cough [None]
  - Fatigue [None]
  - Acute respiratory failure [None]
